FAERS Safety Report 6723802-5 (Version None)
Quarter: 2010Q2

REPORT INFORMATION
  Report Type: 
  Country: None (occurrence: None)
  Receive Date: 20100513
  Receipt Date: 20100204
  Transmission Date: 20101027
  Serious: No
  Sender: FDA-Public Use
  Company Number: A0843015A

PATIENT
  Age: 19 Year
  Sex: Male

DRUGS (2)
  1. TREXIMET [Suspect]
     Indication: MIGRAINE
     Dosage: 1TAB AS REQUIRED
     Route: 048
     Dates: start: 20100101
  2. NO CONCURRENT MEDICATION [Concomitant]

REACTIONS (1)
  - SOMNOLENCE [None]
